FAERS Safety Report 8888393 (Version 1)
Quarter: 2012Q4

REPORT INFORMATION
  Report Type: 
  Country: US (occurrence: US)
  Receive Date: 20121106
  Receipt Date: 20121106
  Transmission Date: 20130627
  Serious: No
  Sender: FDA-Public Use
  Company Number: US-009507513-1210USA013197

PATIENT
  Sex: Female

DRUGS (3)
  1. PEGINTRON [Suspect]
     Dosage: UNK
     Dates: start: 201208
  2. TELAPREVIR [Suspect]
  3. RIBASPHERE [Suspect]
     Dosage: UNK

REACTIONS (2)
  - White blood cell count decreased [Unknown]
  - Haemoglobin decreased [Unknown]
